FAERS Safety Report 7347004-7 (Version None)
Quarter: 2011Q1

REPORT INFORMATION
  Report Type: 
  Country: None (occurrence: None)
  Receive Date: 20110311
  Receipt Date: 20110228
  Transmission Date: 20110831
  Serious: Yes (Other)
  Sender: FDA-Public Use
  Company Number: PHHY2011FR18283

PATIENT
  Sex: Female

DRUGS (6)
  1. PIASCLEDINE [Concomitant]
  2. COTAREG [Concomitant]
  3. MOPRAL [Concomitant]
  4. KARDEGIC [Concomitant]
  5. ACLASTA [Suspect]
     Indication: OSTEOPOROSIS POSTMENOPAUSAL
     Dosage: UNK
     Route: 042
     Dates: start: 20110120
  6. PRAVASTATIN [Concomitant]

REACTIONS (2)
  - IMPAIRED HEALING [None]
  - WOUND DEHISCENCE [None]
